FAERS Safety Report 4643494-9 (Version None)
Quarter: 2005Q2

REPORT INFORMATION
  Report Type: 
  Country: None (occurrence: None)
  Receive Date: 20050325
  Receipt Date: 20050218
  Transmission Date: 20051028
  Serious: No
  Sender: FDA-Public Use
  Company Number: IND-AE-05-SAN-009

PATIENT
  Sex: Female
  Weight: 90.7194 kg

DRUGS (3)
  1. SANCTURA [Suspect]
     Indication: HYPERTONIC BLADDER
     Dosage: 20MG-BID-ORAL
     Route: 048
     Dates: start: 20050107
  2. LOTENSIN [Concomitant]
  3. METOPROLOL TARTRATE [Concomitant]

REACTIONS (1)
  - CONSTIPATION [None]
